FAERS Safety Report 9836689 (Version 1)
Quarter: 2013Q4

REPORT INFORMATION
  Report Type: Spontaneous
  Country: US (occurrence: None)
  Receive Date: 20131127
  Receipt Date: 20131127
  Transmission Date: 20140711
  Serious: Yes (Other)
  Sender: FDA-Public Use
  Company Number: 223698

PATIENT
  Age: 81 Year
  Sex: Female

DRUGS (1)
  1. PICATO GEL [Suspect]
     Indication: ACTINIC KERATOSIS
     Dosage: 1 IN 1 D
     Route: 061
     Dates: start: 20130824, end: 20130826

REACTIONS (4)
  - Erythema [None]
  - Skin irritation [None]
  - Burning sensation [None]
  - Drug administered at inappropriate site [None]
